FAERS Safety Report 7343851-6 (Version None)
Quarter: 2011Q1

REPORT INFORMATION
  Report Type: 
  Country: None (occurrence: None)
  Receive Date: 20110310
  Receipt Date: 20110307
  Transmission Date: 20110831
  Serious: Yes (Other)
  Sender: FDA-Public Use
  Company Number: ES-JNJFOC-20110205643

PATIENT
  Age: 53 Year
  Sex: Male
  Weight: 64 kg

DRUGS (2)
  1. RIFAMPICIN [Concomitant]
  2. REMICADE [Suspect]
     Indication: ERYTHRODERMIC PSORIASIS
     Route: 042

REACTIONS (1)
  - INTERMITTENT CLAUDICATION [None]
